FAERS Safety Report 10715099 (Version 1)
Quarter: 2015Q1

REPORT INFORMATION
  Report Type: Spontaneous
  Country: US (occurrence: US)
  Receive Date: 20150115
  Receipt Date: 20150115
  Transmission Date: 20150721
  Serious: Yes (Death, Other)
  Sender: FDA-Public Use
  Company Number: US-GLAXOSMITHKLINE-US2015GSK003281

PATIENT
  Age: 25 Year
  Sex: Male

DRUGS (3)
  1. BUPROPION [Suspect]
     Active Substance: BUPROPION
  2. HEROIN [Suspect]
     Active Substance: DIACETYLMORPHINE
  3. CODEINE [Suspect]
     Active Substance: CODEINE

REACTIONS (2)
  - Death [Fatal]
  - Drug abuse [Fatal]
